FAERS Safety Report 10716268 (Version 1)
Quarter: 2015Q1

REPORT INFORMATION
  Report Type: Spontaneous
  Country: US (occurrence: None)
  Receive Date: 20150115
  Receipt Date: 20150115
  Transmission Date: 20150721
  Serious: Yes (Disabling, Other)
  Sender: FDA-Public Use
  Company Number: None

PATIENT
  Age: 69 Year
  Sex: Female
  Weight: 77.11 kg

DRUGS (5)
  1. CIPROFLOXACIN HCL DR REDDY^S [Suspect]
     Active Substance: CIPROFLOXACIN HYDROCHLORIDE
     Indication: DIVERTICULITIS
     Route: 048
     Dates: start: 201402, end: 20140303
  2. DIOVAN [Concomitant]
     Active Substance: VALSARTAN
  3. MULTIVITAMINS [Concomitant]
     Active Substance: VITAMINS
  4. ASPIRIN. [Concomitant]
     Active Substance: ASPIRIN
  5. ZOLPIDEMA [Concomitant]

REACTIONS (8)
  - Nausea [None]
  - Neuropathy peripheral [None]
  - Dizziness [None]
  - Dysstasia [None]
  - Tendonitis [None]
  - Abasia [None]
  - Joint swelling [None]
  - Hyperhidrosis [None]

NARRATIVE: CASE EVENT DATE: 20140221
